FAERS Safety Report 6993852-2 (Version None)
Quarter: 2010Q3

REPORT INFORMATION
  Report Type: 
  Country: None (occurrence: None)
  Receive Date: 20100917
  Receipt Date: 20070921
  Transmission Date: 20110219
  Serious: Yes (Other)
  Sender: FDA-Public Use
  Company Number: US-ASTRAZENECA-2006UW21918

PATIENT
  Sex: Male
  Weight: 97.5 kg

DRUGS (27)
  1. SEROQUEL [Suspect]
     Indication: DEPRESSION
     Dosage: 50-100 MG
     Route: 048
     Dates: start: 20040812, end: 20060501
  2. SEROQUEL [Suspect]
     Indication: POST-TRAUMATIC STRESS DISORDER
     Dosage: 50-100 MG
     Route: 048
     Dates: start: 20040812, end: 20060501
  3. SEROQUEL [Suspect]
     Indication: NIGHTMARE
     Dosage: 50-100 MG
     Route: 048
     Dates: start: 20040812, end: 20060501
  4. SEROQUEL [Suspect]
     Indication: SLEEP DISORDER
     Dosage: 50-100 MG
     Route: 048
     Dates: start: 20040812, end: 20060501
  5. GLYBURIDE [Concomitant]
     Dates: start: 20021106
  6. METFORMIN [Concomitant]
     Indication: DIABETES MELLITUS
     Route: 048
     Dates: start: 20021106
  7. GEMFIBROZIL [Concomitant]
     Dosage: 600-1200 MG
     Route: 048
     Dates: start: 20020101
  8. SIMVASTATIN [Concomitant]
     Route: 048
     Dates: start: 20021106
  9. FOSINOPRIL SODIUM [Concomitant]
     Route: 048
     Dates: start: 20021106
  10. ATENOLOL [Concomitant]
     Route: 048
     Dates: start: 20031031
  11. FELODIPINE [Concomitant]
     Route: 048
     Dates: start: 20031031
  12. TERAZOSIN HCL [Concomitant]
     Route: 048
     Dates: start: 20031031
  13. OMEPRAZOLE [Concomitant]
     Dosage: 20-60 MG
     Route: 048
     Dates: start: 20040123
  14. LORATADINE [Concomitant]
     Route: 048
     Dates: start: 20040123
  15. CYCLOBENZAPRINE HCL [Concomitant]
     Indication: MUSCLE SPASMS
     Route: 048
     Dates: start: 20040123
  16. VIAGRA [Concomitant]
     Dosage: 50 MG
     Dates: start: 20040123
  17. PROZAC [Concomitant]
     Route: 048
     Dates: start: 20040123
  18. MORPHINE [Concomitant]
     Indication: PAIN
     Dosage: 30-120 MG
     Route: 048
     Dates: start: 20040812
  19. MORPHINE [Concomitant]
     Indication: BACK PAIN
     Dosage: 30-120 MG
     Route: 048
     Dates: start: 20040812
  20. CELEXA [Concomitant]
     Indication: DEPRESSION
     Dosage: 20-40 MG
     Dates: start: 20050428
  21. GABAPENTIN [Concomitant]
     Indication: BACK PAIN
     Dosage: 900-1800 MG, TABLET, CAPSULE
     Route: 048
     Dates: start: 20040812
  22. GUAIFENESIN [Concomitant]
     Route: 048
     Dates: start: 20051024
  23. HYDROXYZINE [Concomitant]
     Indication: ANXIETY
     Route: 048
     Dates: start: 20051012
  24. PANTOPRAZOLE NA [Concomitant]
     Route: 048
     Dates: start: 20051024
  25. SALSALATE [Concomitant]
     Indication: PAIN
     Route: 048
     Dates: start: 20051012
  26. LISINOPRIL [Concomitant]
     Route: 048
     Dates: start: 20040812
  27. TRAZODONE HCL [Concomitant]
     Dosage: 50-200 MG
     Route: 048
     Dates: start: 20040812

REACTIONS (2)
  - DIABETES MELLITUS [None]
  - DIABETIC KETOACIDOSIS [None]
